FAERS Safety Report 12704526 (Version 1)
Quarter: 2016Q3

REPORT INFORMATION
  Report Type: Spontaneous
  Country: US (occurrence: US)
  Receive Date: 20160831
  Receipt Date: 20160831
  Transmission Date: 20161109
  Serious: No
  Sender: FDA-Public Use
  Company Number: US-SA-2015SA193337

PATIENT
  Sex: Female

DRUGS (2)
  1. AVAPRO [Suspect]
     Active Substance: IRBESARTAN
     Route: 048
  2. AVAPRO [Suspect]
     Active Substance: IRBESARTAN
     Dosage: FREQUENCY-15- MG TWICE A DAY ONCE IN THE MORNING AND ONCE IN THE AFTERNOON
     Route: 048
     Dates: start: 2005

REACTIONS (1)
  - Bladder spasm [Unknown]
